FAERS Safety Report 8117059-0 (Version None)
Quarter: 2012Q1

REPORT INFORMATION
  Report Type: 
  Country: None (occurrence: None)
  Receive Date: 20120206
  Receipt Date: 20120202
  Transmission Date: 20120608
  Serious: Yes (Hospitalization)
  Sender: FDA-Public Use
  Company Number: JP-ABBOTT-11P-087-0881155-00

PATIENT
  Age: 67 Year
  Sex: Male

DRUGS (10)
  1. EMCYT [Concomitant]
     Indication: PROSTATE CANCER
     Route: 048
     Dates: start: 20080401, end: 20110101
  2. FAMOTIDINE [Concomitant]
     Indication: GASTRITIS
     Route: 048
     Dates: start: 20080401
  3. HARNAL D [Concomitant]
     Indication: BENIGN PROSTATIC HYPERPLASIA
     Route: 051
     Dates: start: 20040601
  4. DIAZEPAM [Concomitant]
     Indication: ANXIETY
     Route: 048
  5. DECADRON [Concomitant]
     Indication: PRODUCT USED FOR UNKNOWN INDICATION
     Route: 065
     Dates: start: 20080401
  6. ADALAT [Concomitant]
     Indication: HYPERTENSION
     Route: 048
  7. MUCOSTA [Concomitant]
     Indication: GASTRITIS
     Route: 048
     Dates: start: 20080401
  8. TAXOTERE [Concomitant]
     Indication: PROSTATE CANCER
     Route: 050
     Dates: start: 20110101
  9. LEUPROLIDE ACETATE [Suspect]
     Indication: PROSTATE CANCER
     Route: 058
     Dates: start: 20091127
  10. BETAMETHASONE [Concomitant]
     Indication: PROSTATE CANCER
     Route: 048
     Dates: start: 20080401

REACTIONS (1)
  - SMALL CELL LUNG CANCER STAGE UNSPECIFIED [None]
